FAERS Safety Report 12878263 (Version 1)
Quarter: 2016Q4

REPORT INFORMATION
  Report Type: Spontaneous
  Country: VE (occurrence: VE)
  Receive Date: 20161024
  Receipt Date: 20161024
  Transmission Date: 20170207
  Serious: Yes (Other)
  Sender: FDA-Public Use
  Company Number: VE-SA-2016SA191075

PATIENT
  Age: 43 Year
  Sex: Male

DRUGS (4)
  1. GLAFORNIL [Concomitant]
     Indication: TYPE 2 DIABETES MELLITUS
  2. MEROPENEM. [Concomitant]
     Active Substance: MEROPENEM
     Indication: PATHOGEN RESISTANCE
     Dates: start: 2016
  3. AZTREONAM. [Concomitant]
     Active Substance: AZTREONAM
     Indication: PATHOGEN RESISTANCE
     Dates: start: 2016
  4. RIFADIN [Suspect]
     Active Substance: RIFAMPIN
     Indication: PATHOGEN RESISTANCE
     Route: 065
     Dates: start: 2016, end: 2016

REACTIONS (3)
  - Productive cough [Unknown]
  - Enterocolitis bacterial [Unknown]
  - Diarrhoea [Unknown]

NARRATIVE: CASE EVENT DATE: 201604
